FAERS Safety Report 8521630-1 (Version None)
Quarter: 2012Q3

REPORT INFORMATION
  Report Type: 
  Country: None (occurrence: None)
  Receive Date: 20120719
  Receipt Date: 20120716
  Transmission Date: 20120928
  Serious: Yes (Death, Hospitalization)
  Sender: FDA-Public Use
  Company Number: PHHY2012MX060988

PATIENT
  Sex: Female

DRUGS (3)
  1. LEVOFLOXACIN [Concomitant]
     Indication: INFECTION PROPHYLAXIS
     Dosage: 500 MG, Q8H
     Dates: start: 20110101
  2. CIPROFLOXACIN [Concomitant]
     Indication: INFECTION PROPHYLAXIS
     Dosage: 2 PER DAY
     Dates: start: 20110101
  3. ZOLEDRONOC ACID [Suspect]
     Indication: OSTEOPOROSIS
     Dosage: 5 MG/100 ML YEARLY
     Route: 042

REACTIONS (2)
  - MYELODYSPLASTIC SYNDROME [None]
  - CEREBRAL HAEMORRHAGE [None]
